FAERS Safety Report 7133233-4 (Version None)
Quarter: 2010Q4

REPORT INFORMATION
  Report Type: 
  Country: None (occurrence: None)
  Receive Date: 20101202
  Receipt Date: 20101123
  Transmission Date: 20110411
  Serious: Yes (Life-Threatening, Hospitalization)
  Sender: FDA-Public Use
  Company Number: US-ACTELION-A-US2010-40690

PATIENT

DRUGS (3)
  1. BOSENTAN TABLET 125 MG US [Suspect]
     Indication: PULMONARY ARTERIAL HYPERTENSION
     Dosage: 125 MG, UNK
     Route: 048
     Dates: start: 20090721, end: 20100917
  2. BOSENTAN TABLET 125 MG US [Suspect]
     Dosage: 62.5 MG, UNK
     Route: 048
  3. REVATIO [Concomitant]

REACTIONS (3)
  - ANAEMIA [None]
  - ARTERIOVENOUS MALFORMATION [None]
  - HAEMOGLOBIN DECREASED [None]
